FAERS Safety Report 5145810-0 (Version None)
Quarter: 2006Q4

REPORT INFORMATION
  Report Type: 
  Country: None (occurrence: None)
  Receive Date: 20061108
  Receipt Date: 20061101
  Transmission Date: 20070319
  Serious: Yes (Other)
  Sender: FDA-Public Use
  Company Number: US-JNJFOC-20061100608

PATIENT
  Sex: Female

DRUGS (4)
  1. REMICADE [Suspect]
     Indication: RHEUMATOID ARTHRITIS
     Route: 042
  2. BENADRYL [Concomitant]
     Indication: PREMEDICATION
  3. NPH INSULIN [Concomitant]
     Indication: DIABETES MELLITUS
     Dosage: 1.25 UNITS/HR
     Route: 042
  4. TYLENOL [Concomitant]
     Indication: PREMEDICATION

REACTIONS (2)
  - BLOOD GLUCOSE INCREASED [None]
  - LETHARGY [None]
